FAERS Safety Report 5416596-7 (Version None)
Quarter: 2007Q3

REPORT INFORMATION
  Report Type: 
  Country: None (occurrence: None)
  Receive Date: 20070814
  Receipt Date: 20070814
  Transmission Date: 20080115
  Serious: Yes (Hospitalization, Other)
  Sender: FDA-Public Use
  Company Number: None

PATIENT
  Age: 50 Year
  Sex: Female
  Weight: 78.0187 kg

DRUGS (1)
  1. TYLENOL [Suspect]
     Indication: BACK PAIN
     Dosage: 2 CAPLETS EVERY 4-6 HRS. PO
     Route: 048
     Dates: start: 20070807, end: 20070809

REACTIONS (6)
  - BLOOD GLUCOSE INCREASED [None]
  - BLOOD PRESSURE INCREASED [None]
  - BRADYPHRENIA [None]
  - DIZZINESS [None]
  - FEELING ABNORMAL [None]
  - PHARMACEUTICAL PRODUCT COMPLAINT [None]
